FAERS Safety Report 9882395 (Version 1)
Quarter: 2014Q1

REPORT INFORMATION
  Report Type: Spontaneous
  Country: CH (occurrence: CH)
  Receive Date: 20140207
  Receipt Date: 20140207
  Transmission Date: 20141002
  Serious: Yes (Hospitalization)
  Sender: FDA-Public Use
  Company Number: CH-GLAXOSMITHKLINE-B0967172A

PATIENT
  Age: 62 Year
  Sex: Male

DRUGS (6)
  1. BUPROPION [Suspect]
     Indication: PRODUCT USED FOR UNKNOWN INDICATION
     Dosage: 300MG PER DAY
     Route: 048
     Dates: end: 20140121
  2. ARIPIPRAZOLE [Suspect]
     Indication: PRODUCT USED FOR UNKNOWN INDICATION
     Route: 048
     Dates: start: 20131218, end: 20140121
  3. SERTRALINE [Suspect]
     Indication: PRODUCT USED FOR UNKNOWN INDICATION
     Dosage: 200MG PER DAY
     Route: 048
     Dates: end: 20140121
  4. BIPERIDEN [Suspect]
     Indication: PRODUCT USED FOR UNKNOWN INDICATION
     Dosage: 2MG EVERY 4 DAYS
     Route: 048
     Dates: start: 20140113, end: 20140121
  5. LITHIUM [Suspect]
     Indication: PRODUCT USED FOR UNKNOWN INDICATION
     Dosage: 1UNIT ALTERNATE DAYS
     Route: 048
     Dates: start: 20140114, end: 20140121
  6. LOSARTAN [Concomitant]
     Dosage: 50MG PER DAY
     Route: 048

REACTIONS (5)
  - Serotonin syndrome [Recovering/Resolving]
  - Tremor [Recovering/Resolving]
  - Ataxia [Recovering/Resolving]
  - Confusional state [Recovering/Resolving]
  - Dry mouth [Recovering/Resolving]
